FAERS Safety Report 25651023 (Version 1)
Quarter: 2025Q3

REPORT INFORMATION
  Report Type: Report from Study
  Country: BR (occurrence: BR)
  Receive Date: 20250806
  Receipt Date: 20250806
  Transmission Date: 20251020
  Serious: Yes (Other)
  Sender: TAKEDA
  Company Number: BR-TAKEDA-2024TUS128981

PATIENT
  Sex: Male

DRUGS (4)
  1. HUMAN IMMUNOGLOBULIN G\HYALURONIDASE RECOMBINANT HUMAN [Suspect]
     Active Substance: HUMAN IMMUNOGLOBULIN G\HYALURONIDASE (HUMAN RECOMBINANT)
     Indication: Primary immunodeficiency syndrome
  2. HUMAN IMMUNOGLOBULIN G\HYALURONIDASE RECOMBINANT HUMAN [Suspect]
     Active Substance: HUMAN IMMUNOGLOBULIN G\HYALURONIDASE (HUMAN RECOMBINANT)
     Dosage: 30 GRAM, Q4WEEKS
     Dates: start: 20220119
  3. DIPYRONE [Concomitant]
     Active Substance: DIPYRONE
  4. DESLORATADINE [Concomitant]
     Active Substance: DESLORATADINE

REACTIONS (7)
  - Immunodeficiency common variable [Unknown]
  - Weight increased [Unknown]
  - Blood immunoglobulin A decreased [Unknown]
  - Product dose omission issue [Unknown]
  - Infection [Unknown]
  - Blood immunoglobulin M decreased [Unknown]
  - Blood immunoglobulin G decreased [Unknown]

NARRATIVE: CASE EVENT DATE: 20220101
